FAERS Safety Report 25751679 (Version 3)
Quarter: 2025Q3

REPORT INFORMATION
  Report Type: Spontaneous
  Country: JP (occurrence: JP)
  Receive Date: 20250902
  Receipt Date: 20250930
  Transmission Date: 20251020
  Serious: Yes (Death, Hospitalization, Other)
  Sender: PFIZER
  Company Number: JP-ONO-2024JP020863

PATIENT
  Age: 46 Year
  Sex: Female
  Weight: 56.1 kg

DRUGS (9)
  1. BRAFTOVI [Suspect]
     Active Substance: ENCORAFENIB
     Indication: Malignant melanoma
     Dosage: 450 MG, 1X/DAY (EVERY DAY)
     Route: 048
     Dates: start: 20240802
  2. BRAFTOVI [Suspect]
     Active Substance: ENCORAFENIB
     Dosage: 450 MG, 1X/DAY (EVERY DAY)
     Route: 048
     Dates: start: 20240813, end: 20240813
  3. BRAFTOVI [Suspect]
     Active Substance: ENCORAFENIB
     Dosage: 200 MG, 1X/DAY (EVERY DAY)
     Route: 048
     Dates: start: 20241016, end: 20241215
  4. MEKTOVI [Suspect]
     Active Substance: BINIMETINIB
     Indication: Malignant melanoma
     Dosage: 45 MG, 2X/DAY (Q12H)
     Route: 048
     Dates: start: 20240802
  5. MEKTOVI [Suspect]
     Active Substance: BINIMETINIB
     Dosage: 45 MG, 2X/DAY (Q12H)
     Route: 048
     Dates: start: 20240813, end: 20240813
  6. MEKTOVI [Suspect]
     Active Substance: BINIMETINIB
     Dosage: 15 MG, 2X/DAY (Q12H)
     Route: 048
     Dates: start: 20241016, end: 20241215
  7. OPDIVO [Suspect]
     Active Substance: NIVOLUMAB
     Indication: Malignant melanoma
     Route: 041
     Dates: start: 20240827
  8. YERVOY [Suspect]
     Active Substance: IPILIMUMAB
     Indication: Malignant melanoma
     Route: 041
     Dates: start: 20240827
  9. MIYA-BM [Concomitant]
     Active Substance: CLOSTRIDIUM BUTYRICUM SPORES STRAIN M-55
     Dosage: 1 DF, 3X/DAY (Q8H)
     Route: 048
     Dates: start: 20240805

REACTIONS (6)
  - Malignant melanoma [Fatal]
  - Malignant neoplasm progression [Fatal]
  - Cytokine release syndrome [Recovering/Resolving]
  - Pyrexia [Recovering/Resolving]
  - Malaise [Recovering/Resolving]
  - Blood lactate dehydrogenase increased [Recovering/Resolving]

NARRATIVE: CASE EVENT DATE: 20240811
